FAERS Safety Report 8461441-9 (Version None)
Quarter: 2012Q2

REPORT INFORMATION
  Report Type: 
  Country: None (occurrence: None)
  Receive Date: 20120625
  Receipt Date: 20120612
  Transmission Date: 20120825
  Serious: Yes (Hospitalization, Other)
  Sender: FDA-Public Use
  Company Number: JP-BAYER-2011-082275

PATIENT
  Age: 79 Year
  Sex: Female
  Weight: 47 kg

DRUGS (10)
  1. URSAMIC [Concomitant]
     Dosage: DAILY DOSE 300 MG
     Route: 048
     Dates: start: 20110924
  2. LASIX [Concomitant]
     Dosage: DAILY DOSE 20 MG
     Route: 048
  3. TRICHLORMETHIAZIDE [Concomitant]
     Dosage: DAILY DOSE 2 MG
     Route: 048
  4. NEXAVAR [Suspect]
     Indication: HEPATIC NEOPLASM MALIGNANT
     Dosage: 400 MG, QD
     Route: 048
     Dates: start: 20110906, end: 20110912
  5. LANSOPRAZOLE [Concomitant]
     Dosage: DAILY DOSE 15 MG
     Route: 048
     Dates: start: 20110111
  6. NEXAVAR [Suspect]
     Dosage: 200 MG, QD
     Dates: start: 20110913, end: 20111102
  7. TOLTERODINE TARTRATE [Concomitant]
     Dosage: DAILY DOSE 4 MG
     Route: 048
  8. OLMESARTAN MEDOXOMIL [Concomitant]
     Dosage: DAILY DOSE 20 MG
     Route: 048
     Dates: start: 20110919
  9. NEXAVAR [Suspect]
     Dosage: 200 MG, QD
     Dates: start: 20120111, end: 20120118
  10. AMLODIPINE [Concomitant]
     Dosage: DAILY DOSE 5 MG
     Route: 048

REACTIONS (5)
  - TRANSIENT ISCHAEMIC ATTACK [None]
  - DECREASED APPETITE [None]
  - LUMBAR VERTEBRAL FRACTURE [None]
  - PALMAR-PLANTAR ERYTHRODYSAESTHESIA SYNDROME [None]
  - EPILEPSY [None]
